FAERS Safety Report 4639526-4 (Version None)
Quarter: 2005Q2

REPORT INFORMATION
  Report Type: 
  Country: None (occurrence: None)
  Receive Date: 20050419
  Receipt Date: 20050408
  Transmission Date: 20051028
  Serious: Yes (Hospitalization)
  Sender: FDA-Public Use
  Company Number: 200510514BWH

PATIENT
  Age: 58 Year
  Sex: Male
  Weight: 71.6683 kg

DRUGS (14)
  1. APROTININ [Suspect]
     Indication: QUADRUPLE VESSEL BYPASS GRAFT
     Dates: start: 20050316
  2. PLAVIX [Concomitant]
  3. FENTANYL [Concomitant]
  4. ZEMURON [Concomitant]
  5. PROPOFOL [Concomitant]
  6. MAGNESIUM SULFATE [Concomitant]
  7. VERSED [Concomitant]
  8. NITROGLYCERIN [Concomitant]
  9. HEPARIN [Concomitant]
  10. DOPAMINE [Concomitant]
  11. PROFENAMINE [Concomitant]
  12. MANNITOL [Concomitant]
  13. PARULEON [Concomitant]
  14. LIDOCAINE [Concomitant]

REACTIONS (4)
  - ELECTROCARDIOGRAM ST SEGMENT ELEVATION [None]
  - ELECTROCARDIOGRAM ST-T SEGMENT ABNORMAL [None]
  - MYOCARDIAL ISCHAEMIA [None]
  - POST PROCEDURAL COMPLICATION [None]
